FAERS Safety Report 4453012-6 (Version None)
Quarter: 2004Q3

REPORT INFORMATION
  Report Type: 
  Country: None (occurrence: None)
  Receive Date: 20040916
  Receipt Date: 20040907
  Transmission Date: 20050211
  Serious: Yes (Other)
  Sender: FDA-Public Use
  Company Number: 2004232271US

PATIENT
  Sex: Female

DRUGS (4)
  1. PROVERA [Suspect]
     Dates: start: 19960601, end: 19970801
  2. PREMPRO [Suspect]
     Dates: start: 19970801, end: 20020301
  3. CYRIN () [Suspect]
  4. PREMARIN [Suspect]
     Dates: start: 19960601, end: 19970801

REACTIONS (1)
  - BREAST CANCER FEMALE [None]
